FAERS Safety Report 6075898-4 (Version None)
Quarter: 2009Q1

REPORT INFORMATION
  Report Type: 
  Country: None (occurrence: None)
  Receive Date: 20090212
  Receipt Date: 20090202
  Transmission Date: 20090719
  Serious: Yes (Hospitalization, Other)
  Sender: FDA-Public Use
  Company Number: US-ABBOTT-09P-163-0501173-00

PATIENT
  Sex: Male
  Weight: 56.75 kg

DRUGS (3)
  1. HUMIRA [Suspect]
     Indication: CROHN'S DISEASE
     Route: 058
     Dates: start: 20070101, end: 20070101
  2. HUMIRA [Suspect]
     Dosage: LOADING DOSE
     Route: 058
     Dates: start: 20090131, end: 20090131
  3. HUMIRA [Suspect]
     Route: 058

REACTIONS (3)
  - ABSCESS [None]
  - ANAL FISTULA [None]
  - INJECTION SITE IRRITATION [None]
